FAERS Safety Report 9140761 (Version 1)
Quarter: 2013Q1

REPORT INFORMATION
  Report Type: Spontaneous
  Country: US (occurrence: US)
  Receive Date: 20130305
  Receipt Date: 20130305
  Transmission Date: 20140127
  Serious: Yes (Hospitalization)
  Sender: FDA-Public Use
  Company Number: US-ENDO PHARMACEUTICALS INC.-OPER20100021

PATIENT
  Age: 54 Year
  Sex: Female

DRUGS (3)
  1. OPANA ER [Suspect]
     Indication: PAIN
     Route: 048
  2. OPANA [Suspect]
     Indication: PAIN
     Route: 048
  3. DILANTIN [Suspect]
     Indication: CONVULSION

REACTIONS (4)
  - Feeling abnormal [Recovered/Resolved]
  - Convulsion [Recovered/Resolved]
  - Drug level increased [Unknown]
  - Balance disorder [None]
